FAERS Safety Report 8078150-0 (Version None)
Quarter: 2012Q1

REPORT INFORMATION
  Report Type: 
  Country: None (occurrence: None)
  Receive Date: 20120127
  Receipt Date: 20110222
  Transmission Date: 20120608
  Serious: No
  Sender: FDA-Public Use
  Company Number: US-ABBOTT-10P-163-0690064-00

PATIENT
  Age: 82 Year
  Sex: Male

DRUGS (9)
  1. OMEPRAZOLE [Concomitant]
     Indication: GASTROOESOPHAGEAL REFLUX DISEASE
  2. CORTEG [Concomitant]
     Indication: BLOOD PRESSURE
  3. HUMIRA [Suspect]
     Indication: CROHN'S DISEASE
  4. BALSALAZIDE DISODIUM [Concomitant]
     Indication: COLITIS ULCERATIVE
  5. CARTIA XT [Concomitant]
     Indication: PRODUCT USED FOR UNKNOWN INDICATION
  6. HUMIRA [Suspect]
     Indication: COLITIS ULCERATIVE
     Dates: start: 20101103, end: 20110101
  7. WARFARIN SODIUM [Concomitant]
     Indication: CARDIAC PACEMAKER INSERTION
     Dosage: 2.5 MG DAILY EXCEPT SUNDAY AND WEDNESDAY
  8. DIGOXIN [Concomitant]
     Indication: ARRHYTHMIA
  9. GLIMEPIRIDE [Concomitant]
     Indication: DIABETES MELLITUS

REACTIONS (5)
  - URTICARIA [None]
  - RASH MACULAR [None]
  - RASH [None]
  - RASH PRURITIC [None]
  - DRUG INEFFECTIVE [None]
